FAERS Safety Report 5694714-3 (Version None)
Quarter: 2008Q2

REPORT INFORMATION
  Report Type: 
  Country: None (occurrence: None)
  Receive Date: 20080404
  Receipt Date: 20080326
  Transmission Date: 20081010
  Serious: Yes (Death, Life-Threatening, Hospitalization)
  Sender: FDA-Public Use
  Company Number: B0514580A

PATIENT
  Age: 89 Year
  Sex: Female

DRUGS (15)
  1. DEROXAT [Suspect]
     Indication: DRUG USE FOR UNKNOWN INDICATION
     Dosage: 20MG PER DAY
     Route: 048
     Dates: start: 20070809, end: 20070811
  2. PREVISCAN [Suspect]
     Indication: PULMONARY EMBOLISM
     Route: 048
     Dates: start: 20070808, end: 20070812
  3. INNOHEP [Suspect]
     Indication: PULMONARY EMBOLISM
     Route: 058
     Dates: start: 20070802, end: 20070813
  4. LEVOTHYROXINE SODIUM [Suspect]
     Indication: DRUG USE FOR UNKNOWN INDICATION
     Dosage: 50MCG PER DAY
     Route: 048
     Dates: end: 20070813
  5. TRIFLUCAN [Suspect]
     Indication: DRUG USE FOR UNKNOWN INDICATION
     Route: 048
     Dates: start: 20070809, end: 20070813
  6. TAVANIC [Suspect]
     Indication: DRUG USE FOR UNKNOWN INDICATION
     Dosage: 500MG PER DAY
     Route: 048
     Dates: start: 20070802, end: 20070812
  7. CEFTRIAXONE [Suspect]
     Indication: DRUG USE FOR UNKNOWN INDICATION
     Dosage: 1G PER DAY
     Route: 042
     Dates: start: 20070802, end: 20070814
  8. PRIMPERAN INJ [Concomitant]
  9. ALDACTONE [Concomitant]
     Route: 048
  10. COVERSYL [Concomitant]
     Route: 048
  11. FORLAX [Concomitant]
     Route: 048
  12. LASILIX [Concomitant]
  13. RIVOTRIL [Concomitant]
  14. INSULATARD [Concomitant]
     Route: 058
  15. UMULINE [Concomitant]
     Route: 058

REACTIONS (8)
  - ANAEMIA [None]
  - ASTHENIA [None]
  - CARDIOGENIC SHOCK [None]
  - HAEMATEMESIS [None]
  - INTERNATIONAL NORMALISED RATIO INCREASED [None]
  - OVERDOSE [None]
  - RECTAL HAEMORRHAGE [None]
  - VOMITING [None]
